FAERS Safety Report 9708394 (Version 3)
Quarter: 2013Q4

REPORT INFORMATION
  Report Type: Report from Study
  Country: US (occurrence: US)
  Receive Date: 20131125
  Receipt Date: 20131209
  Transmission Date: 20140711
  Serious: Yes (Hospitalization, Disabling)
  Sender: FDA-Public Use
  Company Number: US-ACTELION-A-US2013-91704

PATIENT
  Age: 52 Year
  Sex: Male

DRUGS (5)
  1. VENTAVIS [Suspect]
     Indication: PULMONARY HYPERTENSION
     Dosage: 5 MCG, 6/DAILY
     Route: 055
     Dates: start: 20130822, end: 20131118
  2. TRACLEER [Concomitant]
     Indication: PULMONARY HYPERTENSION
     Dosage: 125 MG, BID
     Route: 048
  3. SPIRONOLACTONE [Concomitant]
     Dosage: 100 MG, UNK
  4. XARELTO [Concomitant]
     Dosage: 20 MG, UNK
  5. DERMADEX [Concomitant]
     Dosage: 50 MG, UNK

REACTIONS (5)
  - Gastric neoplasm [Unknown]
  - Abdominal distension [Unknown]
  - Transfusion [Unknown]
  - Biopsy stomach [Unknown]
  - Lung carcinoma cell type unspecified stage IV [Unknown]
